FAERS Safety Report 17103593 (Version 1)
Quarter: 2019Q4

REPORT INFORMATION
  Report Type: Spontaneous
  Country: US (occurrence: US)
  Receive Date: 20191202
  Receipt Date: 20191202
  Transmission Date: 20200122
  Serious: Yes (Other)
  Sender: FDA-Public Use
  Company Number: None

PATIENT
  Age: 54 Day
  Sex: Female
  Weight: 86.4 kg

DRUGS (2)
  1. NP THYROID [Suspect]
     Active Substance: LEVOTHYROXINE\LIOTHYRONINE
     Indication: AUTOIMMUNE THYROIDITIS
     Dosage: ?          QUANTITY:2 TABLET(S);?
     Route: 048
     Dates: start: 20190501, end: 20191107
  2. ADVIL [Concomitant]
     Active Substance: IBUPROFEN

REACTIONS (8)
  - Fatigue [None]
  - Myalgia [None]
  - Confusional state [None]
  - Weight increased [None]
  - Suicidal ideation [None]
  - Headache [None]
  - Arthralgia [None]
  - Insomnia [None]

NARRATIVE: CASE EVENT DATE: 20191001
